FAERS Safety Report 11088224 (Version 1)
Quarter: 2015Q2

REPORT INFORMATION
  Report Type: Spontaneous
  Country: BR (occurrence: BR)
  Receive Date: 20150504
  Receipt Date: 20150504
  Transmission Date: 20150821
  Serious: Yes (Life-Threatening, Hospitalization)
  Sender: FDA-Public Use
  Company Number: BR-PFIZER INC-2015150432

PATIENT
  Age: 23 Year
  Sex: Male
  Weight: 68 kg

DRUGS (12)
  1. GEODON [Suspect]
     Active Substance: ZIPRASIDONE HYDROCHLORIDE\ZIPRASIDONE MESYLATE
     Indication: SCHIZOPHRENIA
     Dosage: UNK
     Dates: start: 2009
  2. LITHIUM CARBONATE. [Suspect]
     Active Substance: LITHIUM CARBONATE
     Indication: SCHIZOPHRENIA
     Dosage: UNK
     Dates: start: 2009
  3. LEPONEX [Suspect]
     Active Substance: CLOZAPINE
     Dosage: 2 TABLETS OF CLOZAPINE (100MG) IN THE MORNING, AND 7 TABLETS AT NIGHT
     Route: 048
     Dates: start: 201006
  4. DIAZEPAM. [Concomitant]
     Active Substance: DIAZEPAM
     Indication: AGITATION
     Dosage: HALF TABLET OF 10MG, 2X/DAY
     Route: 048
     Dates: start: 2009
  5. HALDOL [Suspect]
     Active Substance: HALOPERIDOL
     Indication: SCHIZOPHRENIA
     Dosage: UNK
     Dates: start: 2009
  6. SEROQUEL [Suspect]
     Active Substance: QUETIAPINE FUMARATE
     Indication: SCHIZOPHRENIA
     Dosage: UNK
     Dates: start: 2009
  7. ABILIFY [Suspect]
     Active Substance: ARIPIPRAZOLE
     Indication: SCHIZOPHRENIA
     Dosage: UNK
     Dates: start: 2009
  8. LEPONEX [Suspect]
     Active Substance: CLOZAPINE
     Indication: SCHIZOPHRENIA
     Dosage: 100 MG, UNK
     Route: 048
     Dates: start: 200906
  9. TRILEPTAL [Suspect]
     Active Substance: OXCARBAZEPINE
     Indication: SCHIZOPHRENIA
     Dosage: 300 MG, 3X/DAY
     Route: 048
     Dates: start: 2009
  10. ZYPREXA [Suspect]
     Active Substance: OLANZAPINE
     Indication: SCHIZOPHRENIA
     Dosage: UNK
     Dates: start: 2009
  11. RISPERIDONE. [Suspect]
     Active Substance: RISPERIDONE
     Indication: SCHIZOPHRENIA
     Dosage: UNK
     Dates: start: 2009
  12. NEXIUM [Concomitant]
     Active Substance: ESOMEPRAZOLE MAGNESIUM
     Indication: ABDOMINAL DISCOMFORT
     Dosage: 40 MG, AT NIGHT
     Route: 048
     Dates: start: 2009

REACTIONS (11)
  - Suicide attempt [Recovered/Resolved]
  - Road traffic accident [Recovered/Resolved]
  - Tooth fracture [Recovered/Resolved]
  - Tardive dyskinesia [Recovering/Resolving]
  - Constipation [Recovering/Resolving]
  - Panic reaction [Recovering/Resolving]
  - Anxiety [Recovering/Resolving]
  - Drug ineffective [Unknown]
  - Nausea [Recovered/Resolved]
  - Persecutory delusion [Recovered/Resolved]
  - Delusional perception [Recovered/Resolved]

NARRATIVE: CASE EVENT DATE: 2009
